FAERS Safety Report 8866232 (Version 3)
Quarter: 2012Q4

REPORT INFORMATION
  Report Type: 
  Country: AU (occurrence: AU)
  Receive Date: 20121025
  Receipt Date: 20121126
  Transmission Date: 20130627
  Serious: Yes (Hospitalization, Other)
  Sender: FDA-Public Use
  Company Number: PHHY2012AU095224

PATIENT
  Age: 48 Year
  Sex: Male

DRUGS (6)
  1. CLOZARIL [Suspect]
     Indication: SCHIZOPHRENIA
     Dosage: 200 mg
     Route: 048
     Dates: start: 20071119
  2. CLOZARIL [Suspect]
     Dosage: 250 mg, QD
     Route: 048
     Dates: start: 20111028
  3. PARACETAMOL + CODEINE [Concomitant]
     Indication: PAIN
     Dosage: UNK 7 to 8 tablets daily
     Route: 048
     Dates: start: 2005
  4. SODIUM VALPROATE [Concomitant]
     Indication: SCHIZOAFFECTIVE DISORDER
     Dosage: UNK UKN, UNK
     Route: 048
  5. CITALOPRAM [Concomitant]
     Indication: DEPRESSION
     Dosage: 20 mg, QD
     Route: 048
     Dates: end: 20121029
  6. PHENTOLAMINE [Concomitant]
     Indication: WEIGHT DECREASED
     Dosage: UNK

REACTIONS (6)
  - Psychotic disorder [Recovering/Resolving]
  - Paranoia [Recovering/Resolving]
  - Drug abuse [Not Recovered/Not Resolved]
  - Gamma-glutamyltransferase increased [Unknown]
  - Glucose tolerance impaired [Unknown]
  - Antipsychotic drug level below therapeutic [Unknown]
